FAERS Safety Report 8190963-3 (Version None)
Quarter: 2012Q1

REPORT INFORMATION
  Report Type: 
  Country: None (occurrence: None)
  Receive Date: 20120307
  Receipt Date: 20120302
  Transmission Date: 20120608
  Serious: Yes (Life-Threatening, Hospitalization, Other)
  Sender: FDA-Public Use
  Company Number: IE-ACTELION-A-CH2011-49109

PATIENT
  Sex: Female
  Weight: 60 kg

DRUGS (10)
  1. IMODIUM [Concomitant]
  2. LANSOPRAZOLE [Concomitant]
  3. ZOFRAN [Concomitant]
  4. ACTIQ [Concomitant]
  5. VENTAVIS [Suspect]
     Indication: PRODUCT USED FOR UNKNOWN INDICATION
  6. ZOPICLONE [Concomitant]
  7. OXYCODONE HCL [Concomitant]
  8. TRACLEER [Suspect]
     Indication: SKIN ULCER
     Dosage: 62.5 MG, UNK
     Route: 048
     Dates: start: 20090101
  9. MIRTAZAPINE [Concomitant]
  10. MOTILIUM [Concomitant]

REACTIONS (2)
  - CARDIAC ARREST [None]
  - SCLERODERMA RENAL CRISIS [None]
